FAERS Safety Report 10521323 (Version 1)
Quarter: 2014Q4

REPORT INFORMATION
  Report Type: Spontaneous
  Country: US (occurrence: US)
  Receive Date: 20141016
  Receipt Date: 20141016
  Transmission Date: 20150528
  Serious: Yes (Other)
  Sender: FDA-Public Use
  Company Number: US-AMGEN-USASP2014078357

PATIENT
  Age: 91 Year
  Sex: Female

DRUGS (1)
  1. XGEVA [Suspect]
     Active Substance: DENOSUMAB
     Indication: PRODUCT USED FOR UNKNOWN INDICATION
     Route: 065

REACTIONS (14)
  - Tibia fracture [Recovered/Resolved]
  - Compression fracture [Not Recovered/Not Resolved]
  - Cerebrovascular accident [Unknown]
  - Fall [Unknown]
  - Fatigue [Unknown]
  - Metastases to spine [Unknown]
  - Mobility decreased [Unknown]
  - Gingival pain [Unknown]
  - Pain [Unknown]
  - Headache [Unknown]
  - Drug hypersensitivity [Unknown]
  - Tooth disorder [Unknown]
  - Ligament sprain [Unknown]
  - Nausea [Unknown]

NARRATIVE: CASE EVENT DATE: 201305
